FAERS Safety Report 12576198 (Version 4)
Quarter: 2016Q3

REPORT INFORMATION
  Report Type: Spontaneous
  Country: JP (occurrence: JP)
  Receive Date: 20160720
  Receipt Date: 20160923
  Transmission Date: 20161109
  Serious: Yes (Life-Threatening, Hospitalization, Other)
  Sender: FDA-Public Use
  Company Number: JP-GILEAD-2016-0221287

PATIENT
  Age: 77 Year
  Sex: Female
  Weight: 57.1 kg

DRUGS (9)
  1. SENNOSIDE                          /00571901/ [Concomitant]
     Active Substance: SENNOSIDES A AND B
  2. CILOSTAZOL. [Concomitant]
     Active Substance: CILOSTAZOL
  3. TRAMCET [Concomitant]
     Active Substance: ACETAMINOPHEN\TRAMADOL
  4. MERISLON [Concomitant]
     Active Substance: BETAHISTINE MESILATE
  5. LANSOPRAZOLE. [Concomitant]
     Active Substance: LANSOPRAZOLE
  6. TRYPTANOL                          /00002202/ [Concomitant]
     Active Substance: AMITRIPTYLINE
  7. URSO [Concomitant]
     Active Substance: URSODIOL
  8. HARVONI [Suspect]
     Active Substance: LEDIPASVIR\SOFOSBUVIR
     Indication: CHRONIC HEPATITIS C
     Dosage: 1 DF, QD
     Route: 048
     Dates: start: 20160511
  9. ALINAMIN                           /00257802/ [Concomitant]

REACTIONS (6)
  - Cognitive disorder [Recovering/Resolving]
  - Basal ganglia haemorrhage [Recovered/Resolved with Sequelae]
  - Subarachnoid haematoma [Unknown]
  - Cerebral ventricular rupture [Recovered/Resolved with Sequelae]
  - Paralysis [Recovering/Resolving]
  - Cerebral ventricle dilatation [Unknown]

NARRATIVE: CASE EVENT DATE: 20160616
